FAERS Safety Report 5556607-1 (Version None)
Quarter: 2007Q4

REPORT INFORMATION
  Report Type: 
  Country: None (occurrence: None)
  Receive Date: 20071213
  Receipt Date: 20070911
  Transmission Date: 20080405
  Serious: No
  Sender: FDA-Public Use
  Company Number: US-AMGEN-KDL242409

PATIENT
  Sex: Male

DRUGS (2)
  1. ENBREL [Suspect]
     Indication: PSORIATIC ARTHROPATHY
     Route: 058
     Dates: start: 20030502
  2. ENBREL [Suspect]
     Indication: PSORIASIS

REACTIONS (5)
  - COUGH [None]
  - FATIGUE [None]
  - HEADACHE [None]
  - INFLUENZA [None]
  - RESPIRATORY TRACT CONGESTION [None]
